FAERS Safety Report 8299294-4 (Version None)
Quarter: 2012Q2

REPORT INFORMATION
  Report Type: 
  Country: None (occurrence: None)
  Receive Date: 20120416
  Receipt Date: 20120416
  Transmission Date: 20120825
  Serious: No
  Sender: FDA-Public Use
  Company Number: None

PATIENT
  Age: 6 Year
  Sex: Female

DRUGS (1)
  1. AMOXICILLIN [Suspect]
     Dates: start: 20081207, end: 20081212

REACTIONS (6)
  - LIVER DISORDER [None]
  - HEPATITIS [None]
  - SYSTEMIC LUPUS ERYTHEMATOSUS [None]
  - LUPUS NEPHRITIS [None]
  - CHOLESTASIS [None]
  - NEPHROTIC SYNDROME [None]
